FAERS Safety Report 8529885-4 (Version None)
Quarter: 2012Q3

REPORT INFORMATION
  Report Type: 
  Country: None (occurrence: None)
  Receive Date: 20120723
  Receipt Date: 20120713
  Transmission Date: 20120928
  Serious: Yes (Death)
  Sender: FDA-Public Use
  Company Number: DE-JNJFOC-20120708399

PATIENT
  Age: 52 Year
  Sex: Female

DRUGS (12)
  1. AMLODIPINE BESYLATE [Interacting]
     Route: 065
  2. PROTHIPENDYL [Interacting]
     Indication: PRODUCT USED FOR UNKNOWN INDICATION
     Dosage: DOUBLE DOSAGE AT NIGHT
     Route: 065
  3. TILIDINE [Suspect]
     Indication: PRODUCT USED FOR UNKNOWN INDICATION
     Route: 065
  4. DOXEPIN [Interacting]
     Route: 065
  5. OLANZAPINE [Suspect]
     Indication: PRODUCT USED FOR UNKNOWN INDICATION
     Route: 065
  6. METOPROLOL SUCCINATE [Suspect]
     Indication: PRODUCT USED FOR UNKNOWN INDICATION
     Route: 065
  7. DOXEPIN [Interacting]
     Indication: MENTAL DISORDER
     Route: 065
  8. DOXEPIN [Interacting]
     Route: 065
  9. DIAZEPAM [Interacting]
     Indication: PRODUCT USED FOR UNKNOWN INDICATION
     Route: 065
  10. IBUPROFEN [Suspect]
     Indication: PRODUCT USED FOR UNKNOWN INDICATION
     Route: 065
  11. AMLODIPINE BESYLATE [Interacting]
     Indication: PRODUCT USED FOR UNKNOWN INDICATION
     Route: 065
  12. AMLODIPINE BESYLATE [Interacting]
     Route: 065

REACTIONS (7)
  - TOXICITY TO VARIOUS AGENTS [None]
  - DROOLING [None]
  - LETHARGY [None]
  - PAIN [None]
  - DRUG INTERACTION [None]
  - INSOMNIA [None]
  - GAIT DISTURBANCE [None]
